FAERS Safety Report 4697654-1 (Version None)
Quarter: 2005Q2

REPORT INFORMATION
  Report Type: 
  Country: None (occurrence: None)
  Receive Date: 20050620
  Receipt Date: 20041007
  Transmission Date: 20051028
  Serious: Yes (Hospitalization)
  Sender: FDA-Public Use
  Company Number: 200417846US

PATIENT
  Age: 53 Year
  Sex: Female

DRUGS (5)
  1. LANTUS [Suspect]
     Indication: DIABETES MELLITUS NON-INSULIN-DEPENDENT
     Dosage: 25 U
  2. LANTUS [Suspect]
     Indication: DIABETES MELLITUS NON-INSULIN-DEPENDENT
     Dosage: 12 U
  3. HUMALOG [Suspect]
     Dosage: AC
  4. CLOZAPINE [Concomitant]
  5. THYROID MEDICATION (NOS) [Concomitant]

REACTIONS (1)
  - HYPOGLYCAEMIA [None]
